FAERS Safety Report 15662096 (Version 2)
Quarter: 2018Q4

REPORT INFORMATION
  Report Type: Spontaneous
  Country: US (occurrence: US)
  Receive Date: 20181127
  Receipt Date: 20181206
  Transmission Date: 20190205
  Serious: No
  Sender: FDA-Public Use
  Company Number: PHEH2018US048896

PATIENT
  Sex: Female

DRUGS (1)
  1. VOTRIENT [Suspect]
     Active Substance: PAZOPANIB HYDROCHLORIDE
     Indication: PHAKOMATOSIS
     Dosage: 200 MG, QD
     Route: 048
     Dates: start: 20181030

REACTIONS (2)
  - Product use in unapproved indication [Unknown]
  - Blood pressure increased [Not Recovered/Not Resolved]
